FAERS Safety Report 21059370 (Version 1)
Quarter: 2022Q3

REPORT INFORMATION
  Report Type: Spontaneous
  Country: US (occurrence: None)
  Receive Date: 20220708
  Receipt Date: 20220708
  Transmission Date: 20221027
  Serious: Yes (Other)
  Sender: FDA-Public Use
  Company Number: None

PATIENT
  Age: 39 Year
  Sex: Female
  Weight: 85.5 kg

DRUGS (12)
  1. BELSOMRA [Suspect]
     Active Substance: SUVOREXANT
     Indication: Insomnia
     Dosage: OTHER QUANTITY : 1 TABLET(S);?FREQUENCY : AT BEDTIME;?
     Route: 048
     Dates: start: 20220621, end: 20220707
  2. FLUOXETINE [Concomitant]
     Active Substance: FLUOXETINE HYDROCHLORIDE
  3. RAMELTEON [Concomitant]
     Active Substance: RAMELTEON
  4. ALPRAZOLAM [Concomitant]
     Active Substance: ALPRAZOLAM
  5. DAYVIGO [Concomitant]
     Active Substance: LEMBOREXANT
  6. FLINSTONE A MULTI-VITAMIN [Concomitant]
  7. VITAMIN B12 [Concomitant]
     Active Substance: CYANOCOBALAMIN
  8. VITAMIN A [Concomitant]
     Active Substance: VITAMIN A
  9. VITAMIN D [Concomitant]
     Active Substance: VITAMIN D NOS
  10. CALCIUM [Concomitant]
  11. IRON [Concomitant]
     Active Substance: IRON
  12. FIBER CHOICE CHEWABLES [Concomitant]

REACTIONS (4)
  - Pruritus [None]
  - Scratch [None]
  - Urticaria [None]
  - Rash erythematous [None]

NARRATIVE: CASE EVENT DATE: 20220621
